FAERS Safety Report 8386393-1 (Version None)
Quarter: 2012Q2

REPORT INFORMATION
  Report Type: 
  Country: None (occurrence: None)
  Receive Date: 20120523
  Receipt Date: 20120522
  Transmission Date: 20120825
  Serious: Yes (Death, Other)
  Sender: FDA-Public Use
  Company Number: TCI2012A00088

PATIENT
  Age: 87 Year
  Sex: Male

DRUGS (3)
  1. POLLAKISU (OXYBUTYNIN HYDROCHLORIDE) [Concomitant]
  2. URIEF (SILODOSIN) [Concomitant]
  3. ROZEREM [Suspect]
     Dosage: 8 MG (8 MG,1 IN 1 D) PER ORAL
     Route: 048
     Dates: start: 20111104

REACTIONS (3)
  - SUBARACHNOID HAEMORRHAGE [None]
  - NIGHTMARE [None]
  - SUDDEN DEATH [None]
